FAERS Safety Report 5622326-6 (Version None)
Quarter: 2008Q1

REPORT INFORMATION
  Report Type: 
  Country: None (occurrence: None)
  Receive Date: 20080114
  Receipt Date: 20070618
  Transmission Date: 20080703
  Serious: Yes (Hospitalization)
  Sender: FDA-Public Use
  Company Number: A03200704012

PATIENT
  Age: 82 Year
  Sex: Female

DRUGS (3)
  1. PLAVIX [Suspect]
     Dosage: ORAL
     Route: 048
  2. ASPIRIN [Suspect]
     Dosage: ORAL
     Route: 048
  3. DABIGATRAN ETEXILATE [Suspect]
     Indication: CEREBROVASCULAR ACCIDENT PROPHYLAXIS

REACTIONS (1)
  - POST PROCEDURAL HAEMATOMA [None]
